FAERS Safety Report 7444303-5 (Version None)
Quarter: 2011Q2

REPORT INFORMATION
  Report Type: 
  Country: None (occurrence: None)
  Receive Date: 20110429
  Receipt Date: 20110415
  Transmission Date: 20111010
  Serious: Yes (Other)
  Sender: FDA-Public Use
  Company Number: PL-JNJFOC-20110407699

PATIENT
  Age: 30 Year
  Sex: Female

DRUGS (1)
  1. ORTHO EVRA [Suspect]
     Indication: PRODUCT USED FOR UNKNOWN INDICATION
     Route: 062

REACTIONS (5)
  - APPLICATION SITE ERYTHEMA [None]
  - FIBRIN D DIMER INCREASED [None]
  - BLOOD BILIRUBIN INCREASED [None]
  - APPLICATION SITE RASH [None]
  - ARRHYTHMIA [None]
